FAERS Safety Report 4853127-4 (Version None)
Quarter: 2005Q4

REPORT INFORMATION
  Report Type: 
  Country: None (occurrence: None)
  Receive Date: 20051212
  Receipt Date: 20051129
  Transmission Date: 20060501
  Serious: Yes (Other)
  Sender: FDA-Public Use
  Company Number: HQWYE771730NOV05

PATIENT
  Age: 44 Year
  Sex: Male

DRUGS (6)
  1. RAPAMUNE [Suspect]
     Dosage: SEE IMAGE
     Dates: start: 20051028, end: 20051029
  2. RAPAMUNE [Suspect]
     Dosage: SEE IMAGE
     Dates: start: 20051030
  3. ZENAPX (DACLIZUMAB) [Concomitant]
  4. MYCOPHENOLATE MOFETIL (MYCOPHENOLATE MOFETIL) [Concomitant]
  5. CYCLOSPORINE [Concomitant]
  6. CORTICOSTEROID NOS COTICOSTEROID NOS) [Concomitant]

REACTIONS (3)
  - HALLUCINATION [None]
  - MENTAL DISORDER [None]
  - SUICIDAL IDEATION [None]
